FAERS Safety Report 8914650 (Version 4)
Quarter: 2013Q3

REPORT INFORMATION
  Report Type: Spontaneous
  Country: US (occurrence: US)
  Receive Date: 20121119
  Receipt Date: 20130808
  Transmission Date: 20140515
  Serious: Yes (Hospitalization, Other)
  Sender: FDA-Public Use
  Company Number: US-009507513-1211USA006910

PATIENT
  Sex: Female
  Weight: 66.67 kg

DRUGS (5)
  1. FOSAMAX [Suspect]
     Indication: OSTEOPOROSIS PROPHYLAXIS
     Dosage: 70 MG, QW
     Route: 048
     Dates: start: 200011, end: 20060403
  2. FOSAMAX [Suspect]
     Indication: OSTEOPOROSIS
  3. FOSAMAX PLUS D [Suspect]
     Indication: OSTEOPOROSIS PROPHYLAXIS
     Dosage: 70 MG, QW
     Route: 048
     Dates: start: 200605, end: 200910
  4. CENTRUM SILVER [Concomitant]
     Dosage: 1 DF, QD
     Dates: start: 1998
  5. FELODIPINE [Concomitant]
     Indication: HYPERTENSION

REACTIONS (11)
  - Femur fracture [Unknown]
  - Open reduction of fracture [Unknown]
  - Femur fracture [Unknown]
  - Intramedullary rod insertion [Unknown]
  - Stress fracture [Unknown]
  - Blood cholesterol increased [Unknown]
  - Osteoarthritis [Unknown]
  - Osteoarthritis [Unknown]
  - Arthropathy [Unknown]
  - Bone pain [Unknown]
  - Vertigo [Unknown]
